FAERS Safety Report 6226255-9 (Version None)
Quarter: 2009Q2

REPORT INFORMATION
  Report Type: 
  Country: None (occurrence: None)
  Receive Date: 20090612
  Receipt Date: 20090512
  Transmission Date: 20091009
  Serious: No
  Sender: FDA-Public Use
  Company Number: US-ABBOTT-09P-163-0573097-00

PATIENT
  Sex: Female

DRUGS (3)
  1. HUMIRA [Suspect]
     Indication: CROHN'S DISEASE
     Dates: start: 20070911
  2. VITAMINS [Concomitant]
     Indication: DRUG USE FOR UNKNOWN INDICATION
  3. UNKNOWN ANTI DEPRESSENT [Concomitant]
     Indication: DRUG USE FOR UNKNOWN INDICATION

REACTIONS (2)
  - CROHN'S DISEASE [None]
  - MICTURITION URGENCY [None]
